FAERS Safety Report 4735327-7 (Version None)
Quarter: 2005Q3

REPORT INFORMATION
  Report Type: 
  Country: None (occurrence: None)
  Receive Date: 20050803
  Receipt Date: 20050715
  Transmission Date: 20060218
  Serious: Yes (Other)
  Sender: FDA-Public Use
  Company Number: US_000440344

PATIENT
  Age: 49 Year
  Sex: Female
  Weight: 68 kg

DRUGS (8)
  1. HUMULIN R [Suspect]
     Indication: DIABETES MELLITUS INSULIN-DEPENDENT
     Dates: start: 19870101
  2. HUMULIN L [Suspect]
     Indication: DIABETES MELLITUS INSULIN-DEPENDENT
     Dosage: 16 U DAY
     Dates: start: 19850101
  3. HUMULIN N [Suspect]
     Indication: DIABETES MELLITUS
     Dates: start: 20000501, end: 20000501
  4. ILETIN [Suspect]
     Indication: DIABETES MELLITUS INSULIN-DEPENDENT
     Dosage: 17 U DAY
     Dates: start: 20050601
  5. LENTE ILETIN II (PORK) [Suspect]
     Indication: DIABETES MELLITUS INSULIN-DEPENDENT
     Dosage: 30 U DAY
     Dates: start: 19600101
  6. NPH ILETIN I (BEEF-PORK) [Suspect]
     Indication: DIABETES MELLITUS INSULIN-DEPENDENT
     Dates: start: 19930101, end: 19990101
  7. LENTE ILETIN (BEEF-PORK) INSULIN ZINC [Suspect]
     Indication: DIABETES MELLITUS INSULIN-DEPENDENT
     Dates: start: 19600101, end: 20000501
  8. NOVOLIN R [Concomitant]

REACTIONS (15)
  - ARRHYTHMIA [None]
  - BLOOD GLUCOSE FLUCTUATION [None]
  - CONVULSION [None]
  - DIABETES MELLITUS INADEQUATE CONTROL [None]
  - DRUG HYPERSENSITIVITY [None]
  - DRUG INEFFECTIVE [None]
  - KETOACIDOSIS [None]
  - LOSS OF CONSCIOUSNESS [None]
  - MENOPAUSE [None]
  - NEUROPATHY PERIPHERAL [None]
  - NIGHT SWEATS [None]
  - PAIN IN EXTREMITY [None]
  - PALPITATIONS [None]
  - SHOCK [None]
  - VISUAL ACUITY REDUCED [None]
